FAERS Safety Report 23329494 (Version 1)
Quarter: 2023Q4

REPORT INFORMATION
  Report Type: Spontaneous
  Country: GB (occurrence: None)
  Receive Date: 20231222
  Receipt Date: 20231222
  Transmission Date: 20240109
  Serious: Yes (Other)
  Sender: FDA-Public Use
  Company Number: GB-ROCHE-3477894

PATIENT
  Sex: Female

DRUGS (3)
  1. TOCILIZUMAB [Suspect]
     Active Substance: TOCILIZUMAB
     Indication: Giant cell arteritis
     Route: 058
     Dates: start: 2023
  2. RISPERIDONE [Concomitant]
     Active Substance: RISPERIDONE
  3. AMOXICILLIN [Concomitant]
     Active Substance: AMOXICILLIN

REACTIONS (5)
  - Cellulitis [Unknown]
  - Psychotic disorder [Unknown]
  - Tremor [Unknown]
  - Insomnia [Unknown]
  - Peripheral swelling [Unknown]
